FAERS Safety Report 17404577 (Version 1)
Quarter: 2020Q1

REPORT INFORMATION
  Report Type: Other
  Country: DE (occurrence: DE)
  Receive Date: 20200211
  Receipt Date: 20200211
  Transmission Date: 20200409
  Serious: Yes (Other)
  Sender: FDA-Public Use
  Company Number: DE-CELLTRION INC.-2019DE017572

PATIENT

DRUGS (5)
  1. TRASTUZUMAB EMTANSINE [Suspect]
     Active Substance: ADO-TRASTUZUMAB EMTANSINE
     Indication: BREAST CANCER
     Dosage: 165.5 MG
     Route: 065
     Dates: start: 20190701
  2. DOCETAXEL. [Suspect]
     Active Substance: DOCETAXEL
     Dosage: 105 MG
     Route: 065
     Dates: start: 20180820, end: 20181001
  3. PERTUZUMAB. [Suspect]
     Active Substance: PERTUZUMAB
     Indication: BREAST CANCER
     Dosage: DOSE PRIOR TO FATIGUE: 30 JUL 2018; MOST RECENT DOSE: 11 JUN 2019
     Route: 042
     Dates: start: 20180709, end: 20190611
  4. TRASTUZUMAB (UNKNOWN) [Suspect]
     Active Substance: TRASTUZUMAB
     Indication: BREAST CANCER
     Dosage: DOSE PRIOR TO FATIGUE: 30 JUL 2018; MOST RECENT DOSE: 11 JUN 2019
     Route: 042
     Dates: start: 20180709, end: 20190611
  5. DOCETAXEL. [Suspect]
     Active Substance: DOCETAXEL
     Indication: BREAST CANCER
     Dosage: 70 MG
     Route: 065
     Dates: start: 20180709, end: 20180730

REACTIONS (3)
  - Fatigue [Recovered/Resolved]
  - Fatigue [Not Recovered/Not Resolved]
  - Polyneuropathy [Recovered/Resolved]

NARRATIVE: CASE EVENT DATE: 20180813
